FAERS Safety Report 4779469-9 (Version None)
Quarter: 2005Q3

REPORT INFORMATION
  Report Type: 
  Country: None (occurrence: None)
  Receive Date: 20050922
  Receipt Date: 20050415
  Transmission Date: 20060218
  Serious: Yes (Other)
  Sender: FDA-Public Use
  Company Number: 2005021191

PATIENT
  Age: 69 Year
  Sex: Female

DRUGS (5)
  1. ZYRTEC [Suspect]
     Indication: POSTNASAL DRIP
     Dosage: 10 MG (10 MG, 1 IN 1 D), ORAL
     Route: 048
     Dates: start: 20050107, end: 20050114
  2. ASPIRIN [Concomitant]
  3. CALCIUM (CALCIUM) [Concomitant]
  4. DOCUSATE SODIUM (DOCUSATE SODIUM) [Concomitant]
  5. HALCION [Concomitant]

REACTIONS (2)
  - PYREXIA [None]
  - RASH MACULO-PAPULAR [None]
